FAERS Safety Report 16406336 (Version 17)
Quarter: 2019Q3

REPORT INFORMATION
  Report Type: Report from Study
  Country: JP (occurrence: JP)
  Receive Date: 20190607
  Receipt Date: 20190923
  Transmission Date: 20191004
  Serious: Yes (Hospitalization)
  Sender: FDA-Public Use
  Company Number: JP-EISAI MEDICAL RESEARCH-EC-2019-057474

PATIENT
  Age: 72 Year
  Sex: Male
  Weight: 37.8 kg

DRUGS (10)
  1. PEMBROLIZUMAB. [Suspect]
     Active Substance: PEMBROLIZUMAB
     Route: 041
     Dates: start: 20190619
  2. BIOFERMIN [Concomitant]
     Active Substance: DIETARY SUPPLEMENT\PROBIOTICS
     Dates: start: 20090316
  3. BASEN OD [Concomitant]
     Active Substance: VOGLIBOSE
     Dates: start: 20090406
  4. URSODIOL. [Concomitant]
     Active Substance: URSODIOL
     Dates: start: 20080403
  5. LIPACREON [Concomitant]
     Active Substance: PANCRELIPASE
     Dates: start: 20190507
  6. OLMESARTAN TOWA [Concomitant]
     Dates: start: 20190529
  7. LENVATINIB [Suspect]
     Active Substance: LENVATINIB
     Indication: HEPATOCELLULAR CARCINOMA
     Dosage: 8 MILLIGRAM (BODY WEIGHT (BW) LESS THAN 60 KG)
     Route: 048
     Dates: start: 20190528, end: 20190531
  8. LENVATINIB [Suspect]
     Active Substance: LENVATINIB
     Route: 048
     Dates: start: 20190614
  9. PEMBROLIZUMAB. [Suspect]
     Active Substance: PEMBROLIZUMAB
     Indication: HEPATOCELLULAR CARCINOMA
     Route: 041
     Dates: start: 20190528, end: 20190528
  10. AMLODIPINE [Concomitant]
     Active Substance: AMLODIPINE BESYLATE
     Dates: start: 20181220

REACTIONS (1)
  - Tumour lysis syndrome [Recovered/Resolved]

NARRATIVE: CASE EVENT DATE: 20190531
